FAERS Safety Report 25564699 (Version 1)
Quarter: 2025Q3

REPORT INFORMATION
  Report Type: Spontaneous
  Country: US (occurrence: US)
  Receive Date: 20250716
  Receipt Date: 20250716
  Transmission Date: 20251020
  Serious: Yes (Other)
  Sender: NOVO NORDISK
  Company Number: US-NOVOPROD-1294258

PATIENT
  Age: 63 Year
  Sex: Female
  Weight: 68 kg

DRUGS (20)
  1. OZEMPIC [Suspect]
     Active Substance: SEMAGLUTIDE
     Indication: Type 2 diabetes mellitus
     Dosage: 0.25 MG, QW
     Route: 058
     Dates: start: 20210628, end: 20230822
  2. ROBAXIN [Concomitant]
     Active Substance: METHOCARBAMOL
     Indication: Dystonia
     Dates: start: 20190916
  3. HYDROCHLOROTHIAZIDE [Concomitant]
     Active Substance: HYDROCHLOROTHIAZIDE
     Indication: Fluid retention
     Dates: start: 20200603, end: 20240501
  4. ROPINIROLE [Concomitant]
     Active Substance: ROPINIROLE
     Indication: Gastrooesophageal reflux disease
     Dates: start: 20190610
  5. CYANOCOBALAMIN [Concomitant]
     Active Substance: CYANOCOBALAMIN
     Indication: Vitamin B12 deficiency
     Dates: start: 20120101
  6. CARAFATE [Concomitant]
     Active Substance: SUCRALFATE
     Indication: Gastritis
     Dates: start: 20210203, end: 20240501
  7. METOPROLOL TARTRATE [Concomitant]
     Active Substance: METOPROLOL TARTRATE
     Indication: Hypertension
     Dates: start: 20200106
  8. ISOSORBIDE MONONITRATE [Concomitant]
     Active Substance: ISOSORBIDE MONONITRATE
     Indication: Coronary artery disease
     Dates: start: 20200603, end: 20240601
  9. LISINOPRIL [Concomitant]
     Active Substance: LISINOPRIL
     Indication: Hypertension
     Dates: start: 20170101
  10. ERGOCALCIFEROL [Concomitant]
     Active Substance: ERGOCALCIFEROL
     Indication: Vitamin D deficiency
     Dates: start: 20201118
  11. FAMOTIDINE [Concomitant]
     Active Substance: FAMOTIDINE
     Indication: Gastrooesophageal reflux disease
     Dates: start: 20201204, end: 20221118
  12. PANTOPRAZOLE [Concomitant]
     Active Substance: PANTOPRAZOLE
     Indication: Gastrooesophageal reflux disease
     Dates: start: 20200917
  13. CLOPIDOGREL [Concomitant]
     Active Substance: CLOPIDOGREL BISULFATE
     Indication: Coagulopathy
     Dates: start: 20180106
  14. DICLOFENAC SODIUM [Concomitant]
     Active Substance: DICLOFENAC SODIUM
     Indication: Arthritis
     Dates: start: 20200106, end: 20241001
  15. NITROGLYCERIN [Concomitant]
     Active Substance: NITROGLYCERIN
     Indication: Angina pectoris
     Dates: start: 20190212
  16. PRAVASTATIN [Concomitant]
     Active Substance: PRAVASTATIN
     Indication: Hyperlipidaemia
     Dates: start: 20210628, end: 20231201
  17. TRAMADOL [Concomitant]
     Active Substance: TRAMADOL
     Indication: Osteoarthritis
     Dates: start: 20200617
  18. XANAX [Concomitant]
     Active Substance: ALPRAZOLAM
     Indication: Anxiety
     Dates: start: 20211019, end: 20211113
  19. REPATHA [Concomitant]
     Active Substance: EVOLOCUMAB
     Indication: Hyperlipidaemia
     Dates: start: 20220321
  20. ASPIRIN [Concomitant]
     Active Substance: ASPIRIN
     Indication: Coronary artery disease
     Dates: start: 20190227

REACTIONS (6)
  - Impaired gastric emptying [Recovered/Resolved]
  - Nausea [Recovered/Resolved]
  - Diarrhoea [Recovered/Resolved]
  - Abdominal pain [Recovered/Resolved]
  - Vomiting [Recovered/Resolved]
  - Injury [Not Recovered/Not Resolved]

NARRATIVE: CASE EVENT DATE: 20210101
